FAERS Safety Report 5121346-8 (Version None)
Quarter: 2006Q4

REPORT INFORMATION
  Report Type: 
  Country: None (occurrence: None)
  Receive Date: 20061002
  Receipt Date: 20060914
  Transmission Date: 20070319
  Serious: Yes (Hospitalization, Other)
  Sender: FDA-Public Use
  Company Number: US200609003444

PATIENT
  Age: 49 Year
  Sex: Male

DRUGS (4)
  1. HUMALOG [Suspect]
     Indication: DIABETES MELLITUS
     Dates: start: 20060101, end: 20060901
  2. ZYPREXA [Suspect]
     Dates: start: 20050101, end: 20060101
  3. AVANDIA [Concomitant]
  4. GLIPIZIDE [Concomitant]

REACTIONS (5)
  - BLOOD GLUCOSE DECREASED [None]
  - DIABETES MELLITUS [None]
  - DYSPNOEA [None]
  - PNEUMONIA VIRAL [None]
  - PULMONARY EMBOLISM [None]
